FAERS Safety Report 25940980 (Version 1)
Quarter: 2025Q4

REPORT INFORMATION
  Report Type: Spontaneous
  Country: MY (occurrence: MY)
  Receive Date: 20251020
  Receipt Date: 20251020
  Transmission Date: 20260117
  Serious: Yes (Hospitalization, Other)
  Sender: INCYTE
  Company Number: MY-002147023-NVSC2025MY159608

PATIENT
  Age: 37 Year

DRUGS (1)
  1. RUXOLITINIB [Suspect]
     Active Substance: RUXOLITINIB
     Indication: Chronic graft versus host disease
     Dosage: 5 MG, BID
     Route: 065

REACTIONS (3)
  - Pneumonia [Unknown]
  - Graft versus host disease [Unknown]
  - Off label use [Unknown]
